FAERS Safety Report 19010141 (Version 2)
Quarter: 2021Q2

REPORT INFORMATION
  Report Type: Spontaneous
  Country: US (occurrence: US)
  Receive Date: 20210316
  Receipt Date: 20210406
  Transmission Date: 20210717
  Serious: No
  Sender: FDA-Public Use
  Company Number: US-BEH-2021129276

PATIENT
  Sex: Female
  Weight: 105.22 kg

DRUGS (1)
  1. HIZENTRA [Suspect]
     Active Substance: HUMAN IMMUNOGLOBULIN G
     Indication: IMMUNODEFICIENCY COMMON VARIABLE
     Dosage: 15 GRAM, QOW
     Route: 058
     Dates: start: 20210202

REACTIONS (9)
  - Abdominal pain [Unknown]
  - Urinary tract infection [Unknown]
  - Limb discomfort [Unknown]
  - Joint swelling [Unknown]
  - Discomfort [Unknown]
  - Pruritus [Unknown]
  - Fungal infection [Unknown]
  - Headache [Unknown]
  - Weight increased [Unknown]
